FAERS Safety Report 4883270-5 (Version None)
Quarter: 2006Q1

REPORT INFORMATION
  Report Type: 
  Country: None (occurrence: None)
  Receive Date: 20060117
  Receipt Date: 20060117
  Transmission Date: 20060701
  Serious: Yes (Hospitalization)
  Sender: FDA-Public Use
  Company Number: None

PATIENT
  Age: 68 Year
  Sex: Male
  Weight: 94.1 kg

DRUGS (1)
  1. GLYBURIDE [Suspect]
     Indication: HYPERGLYCAEMIA
     Dosage: 5MG  AM PO   ONLY ONE DAY
     Route: 048

REACTIONS (4)
  - CONDITION AGGRAVATED [None]
  - HEADACHE [None]
  - HYPOGLYCAEMIA [None]
  - NAUSEA [None]
